FAERS Safety Report 20708938 (Version 1)
Quarter: 2022Q2

REPORT INFORMATION
  Report Type: Spontaneous
  Country: US (occurrence: None)
  Receive Date: 20220413
  Receipt Date: 20220413
  Transmission Date: 20220721
  Serious: Yes (Death)
  Sender: FDA-Public Use
  Company Number: None

PATIENT
  Age: 66 Year
  Sex: Female

DRUGS (1)
  1. LENALIDOMIDE [Suspect]
     Active Substance: LENALIDOMIDE
     Indication: Central nervous system lymphoma
     Dosage: FREQUENCY : DAILY;?
     Route: 048
     Dates: start: 20220104, end: 20220406

REACTIONS (1)
  - Disease progression [None]

NARRATIVE: CASE EVENT DATE: 20220412
